FAERS Safety Report 8460800 (Version 5)
Quarter: 2013Q2

REPORT INFORMATION
  Report Type: Report from Study
  Country: US (occurrence: US)
  Receive Date: 20120315
  Receipt Date: 20130408
  Transmission Date: 20140414
  Serious: Yes (Hospitalization)
  Sender: FDA-Public Use
  Company Number: US-JNJFOC-20110206312

PATIENT
  Age: 78 Year
  Sex: Male
  Weight: 92 kg

DRUGS (27)
  1. ABIRATERONE ACETATE [Suspect]
     Indication: PROSTATE CANCER METASTATIC
     Route: 048
     Dates: start: 20101023, end: 20110131
  2. ABIRATERONE ACETATE [Suspect]
     Indication: PROSTATE CANCER METASTATIC
     Route: 048
     Dates: start: 20100111, end: 20101020
  3. ABIRATERONE ACETATE [Suspect]
     Indication: PROSTATE CANCER METASTATIC
     Route: 048
     Dates: start: 20120625
  4. ABIRATERONE ACETATE [Suspect]
     Indication: PROSTATE CANCER METASTATIC
     Route: 048
     Dates: start: 20110203, end: 20120622
  5. PREDNISONE [Suspect]
     Indication: PROSTATE CANCER METASTATIC
     Route: 048
     Dates: start: 20120625
  6. PREDNISONE [Suspect]
     Indication: PROSTATE CANCER METASTATIC
     Route: 048
     Dates: start: 20101023, end: 20110131
  7. PREDNISONE [Suspect]
     Indication: PROSTATE CANCER METASTATIC
     Route: 048
     Dates: start: 20100111, end: 20101020
  8. PREDNISONE [Suspect]
     Indication: PROSTATE CANCER METASTATIC
     Route: 048
     Dates: start: 20110202, end: 20120622
  9. LEUPROLIDE ACETATE [Concomitant]
     Indication: HORMONE THERAPY
     Route: 030
     Dates: start: 199708
  10. LEUPROLIDE ACETATE [Concomitant]
     Indication: HORMONE THERAPY
     Dosage: 22.5 UNSPECIFIED UNITS
     Route: 030
     Dates: start: 20100111
  11. CRESTOR [Concomitant]
     Indication: HYPERCHOLESTEROLAEMIA
     Route: 048
     Dates: start: 200601
  12. LEVOTHYROXINE [Concomitant]
     Indication: HYPOTHYROIDISM
     Route: 048
     Dates: start: 200301
  13. TYLENOL [Concomitant]
     Indication: MUSCULOSKELETAL PAIN
     Route: 048
     Dates: start: 200401
  14. VITAMIN D [Concomitant]
     Indication: ROUTINE HEALTH MAINTENANCE
     Route: 048
     Dates: start: 200902, end: 20110630
  15. VITAMIN D [Concomitant]
     Indication: ROUTINE HEALTH MAINTENANCE
     Route: 048
     Dates: start: 200901
  16. VITAMIN D [Concomitant]
     Indication: VITAMIN SUPPLEMENTATION
     Route: 048
     Dates: start: 200901
  17. VITAMIN D [Concomitant]
     Indication: VITAMIN SUPPLEMENTATION
     Route: 048
     Dates: start: 200902, end: 20110630
  18. ALEVE [Concomitant]
     Indication: ARTHRALGIA
     Route: 048
     Dates: start: 20100330
  19. SULFAMETHOXAZOL/TRIMETHOPRIM [Concomitant]
     Indication: URINARY TRACT INFECTION
     Route: 048
     Dates: start: 20101114
  20. FLEXERIL [Concomitant]
     Indication: NECK PAIN
     Route: 048
     Dates: start: 20110108
  21. VICODIN [Concomitant]
     Indication: NECK PAIN
     Dosage: EVERY 4-6 HOURS
     Route: 048
     Dates: start: 20110108
  22. MULTIVITAMINS [Concomitant]
     Indication: PRODUCT USED FOR UNKNOWN INDICATION
     Route: 065
  23. LEVAQUIN [Concomitant]
     Indication: CYSTITIS
     Route: 048
     Dates: start: 20110119, end: 20110126
  24. BACTRIM DS [Concomitant]
     Indication: URINARY TRACT INFECTION
     Route: 048
     Dates: start: 20110105, end: 20110115
  25. VALIUM [Concomitant]
     Indication: NECK PAIN
     Route: 048
     Dates: start: 20110108, end: 20110108
  26. NORFLEX (ORPHENADRINE CITRATE) [Concomitant]
     Indication: NECK PAIN
     Dates: start: 20110108, end: 20110108
  27. TORADOL [Concomitant]
     Indication: NECK PAIN
     Route: 048
     Dates: start: 20110108, end: 20110108

REACTIONS (5)
  - Dyspnoea [Recovered/Resolved]
  - Pulmonary embolism [Recovered/Resolved]
  - Pulmonary hypertension [Unknown]
  - Aortic stenosis [Unknown]
  - Urinary tract infection [Recovered/Resolved]
